FAERS Safety Report 8075226-9 (Version None)
Quarter: 2012Q1

REPORT INFORMATION
  Report Type: 
  Country: None (occurrence: None)
  Receive Date: 20120127
  Receipt Date: 20120113
  Transmission Date: 20120608
  Serious: Yes (Hospitalization)
  Sender: FDA-Public Use
  Company Number: FR-PAR PHARMACEUTICAL, INC-2012SCPR003911

PATIENT

DRUGS (4)
  1. RITUXIMAB [Suspect]
     Indication: MANTLE CELL LYMPHOMA RECURRENT
     Dosage: UNK, UNKNOWN
     Route: 065
     Dates: start: 20111111
  2. DEXAMETHASONE [Suspect]
     Indication: MANTLE CELL LYMPHOMA RECURRENT
     Dosage: UNK, UNKNOWN
     Route: 065
     Dates: start: 20111111
  3. CYTARABINE [Suspect]
     Indication: MANTLE CELL LYMPHOMA RECURRENT
     Dosage: UNK, UNKNOWN (POWDER AND SOLVENT FOR SOLUTION FOR INJECTION)
     Route: 065
     Dates: start: 20111111
  4. TEMSIROLIMUS [Suspect]
     Indication: MANTLE CELL LYMPHOMA RECURRENT
     Dosage: 25 MG, 1X /DAY
     Route: 065
     Dates: start: 20111111

REACTIONS (3)
  - CLOSTRIDIUM DIFFICILE COLITIS [None]
  - VOMITING [None]
  - BLOOD GLUCOSE INCREASED [None]
